FAERS Safety Report 8479207-2 (Version None)
Quarter: 2012Q2

REPORT INFORMATION
  Report Type: 
  Country: None (occurrence: None)
  Receive Date: 20120629
  Receipt Date: 20120621
  Transmission Date: 20120825
  Serious: Yes (Other)
  Sender: FDA-Public Use
  Company Number: FR-VERTEX PHARMACEUTICALS INC.-000000000000000247

PATIENT
  Sex: Male

DRUGS (5)
  1. TRUVADA [Concomitant]
     Dates: start: 20101025
  2. COPEGUS [Concomitant]
     Indication: HEPATITIS C
     Route: 048
     Dates: start: 20111124, end: 20120502
  3. INCIVO (TELAPREVIR) [Suspect]
     Indication: HEPATITIS C
     Dosage: DOSAGE FORM: TABLET
     Route: 048
     Dates: start: 20111124, end: 20120223
  4. PEGASYS [Concomitant]
     Indication: HEPATITIS C
     Route: 048
     Dates: start: 20111124, end: 20120502
  5. ISENTRESS [Concomitant]
     Dates: start: 20101025

REACTIONS (3)
  - SKIN LESION [None]
  - OFF LABEL USE [None]
  - PROCTALGIA [None]
